FAERS Safety Report 18579732 (Version 1)
Quarter: 2020Q4

REPORT INFORMATION
  Report Type: Spontaneous
  Country: CA (occurrence: CA)
  Receive Date: 20201204
  Receipt Date: 20201204
  Transmission Date: 20210114
  Serious: Yes (Other)
  Sender: FDA-Public Use
  Company Number: NVSC2020CA323478

PATIENT
  Age: 11 Year
  Sex: Male

DRUGS (1)
  1. DABRAFENIB [Suspect]
     Active Substance: DABRAFENIB
     Indication: GLIOMA
     Dosage: UNK
     Route: 065
     Dates: start: 201711, end: 201804

REACTIONS (3)
  - Malignant neoplasm progression [Unknown]
  - Glioma [Unknown]
  - Product use in unapproved indication [Unknown]
